FAERS Safety Report 14786738 (Version 2)
Quarter: 2018Q2

REPORT INFORMATION
  Report Type: Spontaneous
  Country: BR (occurrence: BR)
  Receive Date: 20180420
  Receipt Date: 20180604
  Transmission Date: 20180711
  Serious: Yes (Other)
  Sender: FDA-Public Use
  Company Number: BR-B.I. PHARMACEUTICALS,INC./RIDGEFIELD-2018-BI-021432

PATIENT
  Sex: Female
  Weight: 73 kg

DRUGS (5)
  1. ATENSINA [Suspect]
     Active Substance: CLONIDINE
     Indication: HYPERTENSION
     Route: 048
     Dates: start: 2014, end: 2014
  2. ENALAPRIL [Concomitant]
     Active Substance: ENALAPRIL
     Indication: HYPERTENSION
     Route: 048
     Dates: start: 2014
  3. ATENSINA [Suspect]
     Active Substance: CLONIDINE
     Route: 048
     Dates: start: 20180522
  4. ATENSINA [Suspect]
     Active Substance: CLONIDINE
     Route: 048
     Dates: start: 2014, end: 20180521
  5. ATENSINA [Suspect]
     Active Substance: CLONIDINE
     Route: 065
     Dates: start: 201803

REACTIONS (9)
  - Drug ineffective [Recovered/Resolved]
  - Overweight [Unknown]
  - Hypoaesthesia [Recovered/Resolved]
  - Infarction [Recovered/Resolved]
  - Hypoaesthesia oral [Recovered/Resolved]
  - Hypertension [Recovered/Resolved]
  - Hypertension [Recovered/Resolved]
  - Headache [Recovered/Resolved]
  - Headache [Not Recovered/Not Resolved]

NARRATIVE: CASE EVENT DATE: 20180522
